FAERS Safety Report 15542810 (Version 1)
Quarter: 2018Q4

REPORT INFORMATION
  Report Type: Spontaneous
  Country: NO (occurrence: NO)
  Receive Date: 20181023
  Receipt Date: 20181023
  Transmission Date: 20190205
  Serious: Yes (Other)
  Sender: FDA-Public Use
  Company Number: NO-BAYER-2018-194324

PATIENT
  Sex: Female

DRUGS (3)
  1. DOTAREM [Suspect]
     Active Substance: GADOTERATE MEGLUMINE
  2. MAGNEVIST [Suspect]
     Active Substance: GADOPENTETATE DIMEGLUMINE
     Dosage: UNK UNK, ONCE
  3. MEGLUMINE GADOTERATE [Suspect]
     Active Substance: GADOTERATE MEGLUMINE

REACTIONS (2)
  - Contrast media deposition [None]
  - Nuclear magnetic resonance imaging abnormal [None]
